FAERS Safety Report 4816869-2 (Version None)
Quarter: 2005Q4

REPORT INFORMATION
  Report Type: 
  Country: None (occurrence: None)
  Receive Date: 20051031
  Receipt Date: 20051031
  Transmission Date: 20060501
  Serious: Yes (Hospitalization)
  Sender: FDA-Public Use
  Company Number: None

PATIENT
  Age: 58 Year
  Sex: Male

DRUGS (14)
  1. FUROSEMIDE [Suspect]
     Indication: FLUID RETENTION
     Dosage: 80 MG BID
     Dates: start: 20020123
  2. FUROSEMIDE [Suspect]
     Indication: HYPERTENSION
     Dosage: 80 MG BID
     Dates: start: 20020123
  3. LISINOPRIL [Suspect]
     Indication: HYPERTENSION
     Dosage: 40 MG BID
     Dates: start: 20010507
  4. NIFEDIPINE [Concomitant]
  5. CARVEDILOL [Concomitant]
  6. OMEPARAZOLE [Concomitant]
  7. FESO4 [Concomitant]
  8. CALCIUM ACETATE [Concomitant]
  9. PLAVIX [Concomitant]
  10. NPH/REG INSULIN [Concomitant]
  11. ISOSORBIDE [Concomitant]
  12. NITROGLYCERIN [Concomitant]
  13. AMITRIPTYLINE HCL [Concomitant]
  14. SERTRALINE HCL [Concomitant]

REACTIONS (2)
  - HYPERKALAEMIA [None]
  - RENAL FAILURE [None]
